FAERS Safety Report 9418434 (Version 2)
Quarter: 2013Q3

REPORT INFORMATION
  Report Type: Spontaneous
  Country: US (occurrence: US)
  Receive Date: 20130725
  Receipt Date: 20130805
  Transmission Date: 20140515
  Serious: Yes (Other)
  Sender: FDA-Public Use
  Company Number: US-ROCHE-1252103

PATIENT
  Age: 68 Year
  Sex: Female

DRUGS (1)
  1. ALTEPLASE [Suspect]
     Indication: PULMONARY EMBOLISM
     Route: 042

REACTIONS (5)
  - Cardiac tamponade [Unknown]
  - Mediastinal haematoma [Unknown]
  - Haemodynamic instability [Recovered/Resolved]
  - Anaemia [Unknown]
  - Metabolic acidosis [Unknown]
